FAERS Safety Report 25322097 (Version 1)
Quarter: 2025Q2

REPORT INFORMATION
  Report Type: Report from Study
  Country: US (occurrence: US)
  Receive Date: 20250516
  Receipt Date: 20250516
  Transmission Date: 20250716
  Serious: Yes (Death, Other)
  Sender: ACADIA PHARMACEUTICALS
  Company Number: US-ACADIA PHARMACEUTICALS INC.-ACA-2025-PIM-005740

PATIENT
  Sex: Female

DRUGS (14)
  1. NUPLAZID [Suspect]
     Active Substance: PIMAVANSERIN TARTRATE
     Indication: Parkinson^s disease
     Dosage: 34 MILLIGRAM, QD
     Route: 048
     Dates: start: 20240322, end: 20250308
  2. METOPROLOL SUCCINATE [Concomitant]
     Active Substance: METOPROLOL SUCCINATE
  3. ASPIRIN [Concomitant]
     Active Substance: ASPIRIN
  4. MIDODRINE [Concomitant]
     Active Substance: MIDODRINE
  5. FERROUS GLUCONATE [Concomitant]
     Active Substance: FERROUS GLUCONATE
  6. LEVOTHYROXINE [Concomitant]
     Active Substance: LEVOTHYROXINE
  7. CYANOCOBALAMIN [Concomitant]
     Active Substance: CYANOCOBALAMIN
  8. FLUDROCORTISONE [Concomitant]
     Active Substance: FLUDROCORTISONE
  9. DONEPEZIL [Concomitant]
     Active Substance: DONEPEZIL
  10. TRAZODONE [Concomitant]
     Active Substance: TRAZODONE HYDROCHLORIDE
  11. RASAGILINE MESYLATE [Concomitant]
     Active Substance: RASAGILINE MESYLATE
  12. FOLIC ACID [Concomitant]
     Active Substance: FOLIC ACID
  13. ATORVASTATIN [Concomitant]
     Active Substance: ATORVASTATIN
  14. METOLAZONE [Concomitant]
     Active Substance: METOLAZONE

REACTIONS (1)
  - Death [Fatal]
